FAERS Safety Report 24663434 (Version 1)
Quarter: 2024Q4

REPORT INFORMATION
  Report Type: Spontaneous
  Country: GB (occurrence: GB)
  Receive Date: 20241126
  Receipt Date: 20241126
  Transmission Date: 20250115
  Serious: Yes (Other)
  Sender: MSN LABORATORIES PRIVATE LIMITED
  Company Number: None

PATIENT

DRUGS (3)
  1. ATORVASTATIN [Suspect]
     Active Substance: ATORVASTATIN
     Indication: Blood cholesterol increased
     Dosage: 20MG ONCE A DAY AT NIGHT
     Route: 065
     Dates: start: 20240927, end: 20240930
  2. LOSARTAN [Concomitant]
     Active Substance: LOSARTAN
     Indication: Hypertension
     Route: 065
  3. DOXAZOSIN [Concomitant]
     Active Substance: DOXAZOSIN\DOXAZOSIN MESYLATE
     Indication: Hypertension
     Route: 065

REACTIONS (3)
  - Irritability [Recovered/Resolved]
  - Agitation [Recovered/Resolved]
  - Verbal abuse [Unknown]

NARRATIVE: CASE EVENT DATE: 20240928
